FAERS Safety Report 24530043 (Version 3)
Quarter: 2025Q2

REPORT INFORMATION
  Report Type: Report from Study
  Country: US (occurrence: US)
  Receive Date: 20241021
  Receipt Date: 20250409
  Transmission Date: 20250716
  Serious: Yes (Other)
  Sender: UCB
  Company Number: US-UCBSA-2024052857

PATIENT
  Sex: Female
  Weight: 24.6 kg

DRUGS (2)
  1. FINTEPLA [Suspect]
     Active Substance: FENFLURAMINE
     Indication: Severe myoclonic epilepsy of infancy
     Dosage: 15.84 MILLIGRAM, ONCE DAILY (QD)
     Dates: start: 20200919
  2. FINTEPLA [Suspect]
     Active Substance: FENFLURAMINE
     Dosage: 3.6 MILLILITER, 2X/DAY (BID)

REACTIONS (2)
  - Seizure [Recovered/Resolved]
  - Bronchitis [Recovered/Resolved]
